FAERS Safety Report 9672488 (Version 1)
Quarter: 2013Q4

REPORT INFORMATION
  Report Type: Report from Study
  Country: US (occurrence: US)
  Receive Date: 20131106
  Receipt Date: 20131106
  Transmission Date: 20140711
  Serious: Yes (Hospitalization)
  Sender: FDA-Public Use
  Company Number: US-ABBVIE-13P-163-1162883-00

PATIENT
  Age: 30 Year
  Sex: Male

DRUGS (4)
  1. HUMIRA [Suspect]
     Indication: COLITIS ULCERATIVE
     Dates: start: 20130816, end: 20131015
  2. IMURAN [Concomitant]
     Indication: COLITIS ULCERATIVE
  3. PREDNISONE [Concomitant]
     Indication: GASTROINTESTINAL OEDEMA
     Dosage: TAPER
  4. PREDNISONE [Concomitant]
     Indication: COLITIS ULCERATIVE

REACTIONS (5)
  - Influenza like illness [Recovered/Resolved]
  - Pain in extremity [Unknown]
  - Colitis ulcerative [Unknown]
  - Pyrexia [Recovered/Resolved]
  - Headache [Unknown]
